FAERS Safety Report 4658292-X (Version None)
Quarter: 2005Q2

REPORT INFORMATION
  Report Type: 
  Country: None (occurrence: None)
  Receive Date: 20050510
  Receipt Date: 20050510
  Transmission Date: 20051028
  Serious: Yes (Hospitalization)
  Sender: FDA-Public Use
  Company Number: None

PATIENT
  Age: 85 Year
  Sex: Male

DRUGS (6)
  1. AMIODARONE HCL [Suspect]
     Indication: ATRIAL FIBRILLATION
     Dosage: 200MG   DAILY   ORAL
     Route: 048
     Dates: start: 20040101, end: 20050208
  2. CRESTOR [Concomitant]
  3. WARFARIN [Concomitant]
  4. SPIRIVA [Concomitant]
  5. TOPROL-XL [Concomitant]
  6. FOLIC ACID [Concomitant]

REACTIONS (5)
  - CHRONIC OBSTRUCTIVE PULMONARY DISEASE [None]
  - DRUG INEFFECTIVE [None]
  - DRUG TOXICITY [None]
  - PNEUMONIA [None]
  - PULMONARY TOXICITY [None]
